FAERS Safety Report 16625629 (Version 3)
Quarter: 2022Q1

REPORT INFORMATION
  Report Type: Spontaneous
  Country: US (occurrence: US)
  Receive Date: 20190724
  Receipt Date: 20220131
  Transmission Date: 20220423
  Serious: No
  Sender: FDA-Public Use
  Company Number: US-PFIZER INC-2019311295

PATIENT
  Age: 76 Year
  Sex: Male

DRUGS (1)
  1. XELJANZ XR [Suspect]
     Active Substance: TOFACITINIB CITRATE
     Dosage: 11 MG

REACTIONS (6)
  - Memory impairment [Unknown]
  - Nasal discomfort [Unknown]
  - Pain in extremity [Unknown]
  - Osteoarthritis [Unknown]
  - Arthralgia [Unknown]
  - Fall [Unknown]
